FAERS Safety Report 5479400-7 (Version None)
Quarter: 2007Q4

REPORT INFORMATION
  Report Type: 
  Country: None (occurrence: None)
  Receive Date: 20071008
  Receipt Date: 20070925
  Transmission Date: 20080405
  Serious: Yes (Hospitalization)
  Sender: FDA-Public Use
  Company Number: US-AMGEN-STX245020

PATIENT
  Sex: Female

DRUGS (2)
  1. ENBREL [Suspect]
     Indication: JUVENILE ARTHRITIS
     Route: 058
     Dates: start: 20020101
  2. METHOTREXATE [Concomitant]
     Route: 065
     Dates: start: 20070501

REACTIONS (6)
  - ARTHROPATHY [None]
  - FALL [None]
  - HIP ARTHROPLASTY [None]
  - INJECTION SITE PAIN [None]
  - JOINT DESTRUCTION [None]
  - POSTOPERATIVE WOUND INFECTION [None]
